FAERS Safety Report 12981875 (Version 1)
Quarter: 2016Q4

REPORT INFORMATION
  Report Type: Spontaneous
  Country: SE (occurrence: SE)
  Receive Date: 20161129
  Receipt Date: 20161129
  Transmission Date: 20170207
  Serious: Yes (Other)
  Sender: FDA-Public Use
  Company Number: SE-CLINIGEN GROUP PLC/ CLINIGEN HEALTHCARE LTD-SE-CLGN-16-00381

PATIENT
  Age: 2 Year
  Sex: Female

DRUGS (6)
  1. DEXRAZOXANE HYDROCHLORIDE. [Suspect]
     Active Substance: DEXRAZOXANE HYDROCHLORIDE
     Indication: PRODUCT USED FOR UNKNOWN INDICATION
  2. DOXORUBICIN [Concomitant]
     Active Substance: DOXORUBICIN
  3. CISPLATIN. [Concomitant]
     Active Substance: CISPLATIN
     Indication: OSTEOSARCOMA
  4. METHOTREXATE. [Concomitant]
     Active Substance: METHOTREXATE
     Indication: OSTEOSARCOMA
  5. DOXORUBICIN [Concomitant]
     Active Substance: DOXORUBICIN
  6. DOXORUBICIN [Concomitant]
     Active Substance: DOXORUBICIN
     Indication: OSTEOSARCOMA

REACTIONS (4)
  - Left ventricular failure [Unknown]
  - Sepsis [Unknown]
  - Off label use [Unknown]
  - Acute kidney injury [Unknown]
